FAERS Safety Report 4305014-8 (Version None)
Quarter: 2004Q1

REPORT INFORMATION
  Report Type: 
  Country: None (occurrence: None)
  Receive Date: 20040226
  Receipt Date: 20040130
  Transmission Date: 20041129
  Serious: No
  Sender: FDA-Public Use
  Company Number: US-GLAXOSMITHKLINE-A0496936A

PATIENT

DRUGS (3)
  1. WELLBUTRIN XL [Suspect]
     Route: 048
  2. RESPORDOL [Concomitant]
  3. ZOLOFT [Concomitant]

REACTIONS (1)
  - SOMNOLENCE [None]
